FAERS Safety Report 10020865 (Version 1)
Quarter: 2014Q1

REPORT INFORMATION
  Report Type: Spontaneous
  Country: US (occurrence: None)
  Receive Date: 20140318
  Receipt Date: 20140318
  Transmission Date: 20141002
  Serious: Yes (Death)
  Sender: FDA-Public Use
  Company Number: None

PATIENT
  Age: 55 Year
  Sex: Male
  Weight: 124.74 kg

DRUGS (1)
  1. NORTRIPTYLINE [Suspect]
     Indication: MAJOR DEPRESSION
     Dosage: 2 CAPSULES
     Route: 048
     Dates: start: 20140129, end: 20140201

REACTIONS (2)
  - Completed suicide [None]
  - Exposure via ingestion [None]
